FAERS Safety Report 4407206-6 (Version None)
Quarter: 2004Q3

REPORT INFORMATION
  Report Type: 
  Country: None (occurrence: None)
  Receive Date: 20040721
  Receipt Date: 20040707
  Transmission Date: 20050211
  Serious: Yes (Other)
  Sender: FDA-Public Use
  Company Number: USA030947489

PATIENT
  Age: 64 Year
  Sex: Female
  Weight: 75 kg

DRUGS (5)
  1. FORTEO [Suspect]
     Indication: OSTEOPOROSIS
     Dosage: 20 UG/DAY
     Dates: start: 20030625
  2. AMITRIPTYLINE HCL [Concomitant]
  3. SINGULAIR [Concomitant]
  4. PRILOSEC [Concomitant]
  5. IMITREX 9SUMATRIPTAN SUCCINATE) [Concomitant]

REACTIONS (2)
  - BREAST CANCER IN SITU [None]
  - NASOPHARYNGITIS [None]
